FAERS Safety Report 18331980 (Version 21)
Quarter: 2022Q3

REPORT INFORMATION
  Report Type: Spontaneous
  Country: CA (occurrence: CA)
  Receive Date: 20201001
  Receipt Date: 20220816
  Transmission Date: 20221027
  Serious: Yes (Hospitalization, Other)
  Sender: FDA-Public Use
  Company Number: CA-CELLTRION INC.-2020CA023041

PATIENT

DRUGS (23)
  1. INFLECTRA [Suspect]
     Active Substance: INFLIXIMAB-DYYB
     Indication: Crohn^s disease
     Dosage: 300 MG AT 0, 2, 6 WEEKS, THEN EVERY 8 WEEKS, WEEK 0 DOSE
     Route: 042
     Dates: start: 20200604
  2. INFLECTRA [Suspect]
     Active Substance: INFLIXIMAB-DYYB
     Dosage: 300 MG, WEEK 0 DOSE
     Route: 042
     Dates: start: 20200604, end: 20200604
  3. INFLECTRA [Suspect]
     Active Substance: INFLIXIMAB-DYYB
     Dosage: 300 MG AT 0, 2, 6 WEEKS, THEN EVERY 8 WEEKS, WEEK 2 DOSE
     Route: 042
     Dates: start: 20200619
  4. INFLECTRA [Suspect]
     Active Substance: INFLIXIMAB-DYYB
     Dosage: 300 MG, WEEK 2 DOSE
     Route: 042
     Dates: start: 20200619, end: 20200619
  5. INFLECTRA [Suspect]
     Active Substance: INFLIXIMAB-DYYB
     Dosage: 300 MG AT 0, 2, 6 WEEKS, THEN EVERY 8 WEEKS, WEEK 6 DOSE
     Route: 042
     Dates: start: 20200717
  6. INFLECTRA [Suspect]
     Active Substance: INFLIXIMAB-DYYB
     Dosage: 300 MG, WEEK 6 DOSE
     Route: 042
     Dates: start: 20200717, end: 20200717
  7. INFLECTRA [Suspect]
     Active Substance: INFLIXIMAB-DYYB
     Dosage: 300 MG WEEK 0 DOSE (RE-INDUCTION)/INDUCTION AT WEEK 0, 2 AND 6 (RE-INDUCTION) THEN EVERY 8 WEEKS
     Route: 042
     Dates: start: 20210202
  8. INFLECTRA [Suspect]
     Active Substance: INFLIXIMAB-DYYB
     Dosage: 300 MG WEEK 0 DOSE (RE-INDUCTION)/INDUCTION AT WEEK 0, 2 AND 6 (RE-INDUCTION) THEN EVERY 8 WEEKS
     Route: 042
     Dates: start: 20210202
  9. INFLECTRA [Suspect]
     Active Substance: INFLIXIMAB-DYYB
     Dosage: 300 MG WEEK 0 DOSE (RE-INDUCTION)/INDUCTION AT WEEK 0, 2 AND 6 (RE-INDUCTION) THEN EVERY 8 WEEKS
     Route: 042
     Dates: start: 20210217
  10. INFLECTRA [Suspect]
     Active Substance: INFLIXIMAB-DYYB
     Dosage: 300 MG WEEK 0 DOSE (RE-INDUCTION)/INDUCTION AT WEEK 0, 2 AND 6 (RE-INDUCTION) THEN EVERY 8 WEEKS
     Route: 042
     Dates: start: 20210217
  11. INFLECTRA [Suspect]
     Active Substance: INFLIXIMAB-DYYB
     Dosage: 300 MG WEEK 0 DOSE (RE-INDUCTION)
     Route: 042
     Dates: start: 20210324
  12. INFLECTRA [Suspect]
     Active Substance: INFLIXIMAB-DYYB
     Dosage: 300 MG INDUCTION AT WEEK 0, 2 AND 6 (RE-INDUCTION) THEN EVERY 8 WEEKS
     Route: 042
     Dates: start: 20210514
  13. INFLECTRA [Suspect]
     Active Substance: INFLIXIMAB-DYYB
     Dosage: 300 MG INDUCTION AT WEEK 0, 2 AND 6 (RE-INDUCTION) THEN EVERY 8 WEEKS
     Route: 042
     Dates: start: 20210709
  14. INFLECTRA [Suspect]
     Active Substance: INFLIXIMAB-DYYB
     Dosage: 300 MG INDUCTION AT WEEK 0, 2 AND 6 (RE-INDUCTION) THEN EVERY 8 WEEKS
     Route: 042
     Dates: start: 20210903
  15. INFLECTRA [Suspect]
     Active Substance: INFLIXIMAB-DYYB
     Dosage: 300 MG INDUCTION AT WEEK 0, 2 AND 6 (RE-INDUCTION) THEN EVERY 8 WEEKS
     Route: 042
     Dates: start: 20211029
  16. INFLECTRA [Suspect]
     Active Substance: INFLIXIMAB-DYYB
     Dosage: 300 MG INDUCTION AT WEEK 0, 2 AND 6 (RE-INDUCTION) THEN EVERY 8 WEEKS
     Route: 042
     Dates: start: 20211222
  17. INFLECTRA [Suspect]
     Active Substance: INFLIXIMAB-DYYB
     Dosage: 300 MG INDUCTION AT WEEK 0, 2 AND 6 (RE-INDUCTION) THEN EVERY 8 WEEKS
     Route: 042
     Dates: start: 20211222
  18. INFLECTRA [Suspect]
     Active Substance: INFLIXIMAB-DYYB
     Dosage: 300 MG INDUCTION AT WEEK 0, 2 AND 6 (RE-INDUCTION) THEN EVERY 8 WEEKS
     Route: 042
     Dates: start: 20220223
  19. INFLECTRA [Suspect]
     Active Substance: INFLIXIMAB-DYYB
     Dosage: 300 MG INDUCTION AT WEEK 0, 2 AND 6 (RE-INDUCTION) THEN EVERY 8 WEEKS
     Route: 042
     Dates: start: 20220413
  20. INFLECTRA [Suspect]
     Active Substance: INFLIXIMAB-DYYB
     Dosage: 300 MG, INDUCTION AT WEEK 0, 2 AND 6 (RE-INDUCTION) THEN EVERY 8 WEEKS
     Route: 042
     Dates: start: 20220608
  21. INFLECTRA [Suspect]
     Active Substance: INFLIXIMAB-DYYB
     Dosage: 300 MG, INDUCTION AT WEEK 0, 2 AND 6 (RE-INDUCTION) THEN EVERY 8 WEEKS
     Route: 042
     Dates: start: 20220803
  22. SODIUM BICARBONATE [Concomitant]
     Active Substance: SODIUM BICARBONATE
     Dosage: 1 DF
     Route: 065
     Dates: start: 20200609
  23. COUMADIN [Concomitant]
     Active Substance: WARFARIN SODIUM
     Dosage: 1 DF
     Route: 065

REACTIONS (26)
  - Renal failure [Unknown]
  - Clostridium difficile infection [Not Recovered/Not Resolved]
  - Off label use [Unknown]
  - Fatigue [Recovering/Resolving]
  - Headache [Recovering/Resolving]
  - Oedema peripheral [Recovering/Resolving]
  - Disease recurrence [Recovering/Resolving]
  - Blood creatinine increased [Unknown]
  - Malaise [Unknown]
  - Hyperthermia [Unknown]
  - Insomnia [Unknown]
  - Chills [Unknown]
  - Condition aggravated [Not Recovered/Not Resolved]
  - Asthenia [Unknown]
  - Hypertension [Not Recovered/Not Resolved]
  - Weight increased [Unknown]
  - Heart rate decreased [Unknown]
  - Poor venous access [Unknown]
  - Weight decreased [Unknown]
  - Arthralgia [Unknown]
  - International normalised ratio fluctuation [Unknown]
  - Mouth ulceration [Unknown]
  - Oral candidiasis [Unknown]
  - Abscess [Unknown]
  - Diarrhoea [Not Recovered/Not Resolved]
  - Wound [Recovering/Resolving]

NARRATIVE: CASE EVENT DATE: 20200101
